FAERS Safety Report 15120190 (Version 1)
Quarter: 2018Q3

REPORT INFORMATION
  Report Type: Report from Study
  Country: US (occurrence: US)
  Receive Date: 20180709
  Receipt Date: 20180709
  Transmission Date: 20181010
  Serious: No
  Sender: FDA-Public Use
  Company Number: US-AMGEN-USASL2018090244

PATIENT
  Age: 61 Year
  Sex: Female

DRUGS (1)
  1. ENBREL [Suspect]
     Active Substance: ETANERCEPT
     Indication: RHEUMATOID ARTHRITIS
     Dosage: 50 MG, QWK
     Route: 065

REACTIONS (7)
  - Loss of personal independence in daily activities [Unknown]
  - Lacrimation increased [Unknown]
  - Injection site erythema [Unknown]
  - Injection site pruritus [Unknown]
  - Eye pruritus [Unknown]
  - Pain in extremity [Unknown]
  - Hyperaesthesia [Unknown]
